FAERS Safety Report 11107251 (Version 2)
Quarter: 2015Q3

REPORT INFORMATION
  Report Type: Spontaneous
  Country: US (occurrence: US)
  Receive Date: 20150512
  Receipt Date: 20150901
  Transmission Date: 20151125
  Serious: Yes (Hospitalization, Disabling, Other)
  Sender: FDA-Public Use
  Company Number: US-009507513-1203USA00769

PATIENT
  Sex: Female
  Weight: 56.24 kg

DRUGS (5)
  1. FOSAMAX PLUS D [Suspect]
     Active Substance: ALENDRONATE SODIUM\CHOLECALCIFEROL
     Indication: MENOPAUSE
     Dosage: 70 MG, UNK
     Route: 048
     Dates: end: 20080729
  2. IBANDRONATE SODIUM. [Suspect]
     Active Substance: IBANDRONATE SODIUM
     Dates: start: 2005, end: 2008
  3. BONIVA [Suspect]
     Active Substance: IBANDRONATE SODIUM
     Indication: MENOPAUSE
     Dosage: 150 MG, UNK
     Dates: start: 200701, end: 200807
  4. FOSAMAX [Suspect]
     Active Substance: ALENDRONATE SODIUM
     Indication: MENOPAUSE
     Dosage: 70 MG, UNK
     Route: 048
     Dates: start: 20040727, end: 200611
  5. FOSAMAX [Suspect]
     Active Substance: ALENDRONATE SODIUM
     Dosage: UNK
     Route: 048
     Dates: start: 2005, end: 2008

REACTIONS (26)
  - Hypertension [Unknown]
  - Meniscus injury [Unknown]
  - Back pain [Unknown]
  - Thyroid disorder [Unknown]
  - Low turnover osteopathy [Not Recovered/Not Resolved]
  - Thyroid neoplasm [Unknown]
  - Breast cyst excision [Unknown]
  - Vitamin D deficiency [Unknown]
  - Stress fracture [Unknown]
  - Off label use [Unknown]
  - Gastrointestinal infection [Unknown]
  - Kyphosis [Unknown]
  - Intramedullary rod insertion [Unknown]
  - Thrombosis [Unknown]
  - Femur fracture [Recovering/Resolving]
  - Osteopenia [Unknown]
  - Fibromyalgia [Unknown]
  - Patellofemoral pain syndrome [Unknown]
  - Osteomalacia [Unknown]
  - N-telopeptide [Unknown]
  - Intramedullary rod insertion [Unknown]
  - Osteoporosis [Not Recovered/Not Resolved]
  - Blood alkaline phosphatase increased [Unknown]
  - Deep vein thrombosis [Unknown]
  - Spondylolisthesis [Unknown]
  - Hypercholesterolaemia [Unknown]

NARRATIVE: CASE EVENT DATE: 20040727
